FAERS Safety Report 14255987 (Version 1)
Quarter: 2017Q4

REPORT INFORMATION
  Report Type: Spontaneous
  Country: CH (occurrence: CH)
  Receive Date: 20171206
  Receipt Date: 20171206
  Transmission Date: 20180321
  Serious: Yes (Hospitalization)
  Sender: FDA-Public Use
  Company Number: CH-PFIZER INC-2017515344

PATIENT
  Age: 41 Year
  Sex: Male

DRUGS (14)
  1. CITALOPRAM [Suspect]
     Active Substance: CITALOPRAM HYDROBROMIDE
     Dosage: 30 MG, 1X/DAY
     Route: 048
     Dates: start: 20170703, end: 20170816
  2. ABILIFY [Suspect]
     Active Substance: ARIPIPRAZOLE
     Dosage: 20 MG, 1X/DAY
     Route: 048
     Dates: start: 20170908
  3. LIORESAL [Concomitant]
     Active Substance: BACLOFEN
     Dosage: 5 MG TWICE DAILY + 10 MG DAILY ON DEMAND
     Route: 048
     Dates: start: 20170321
  4. TEMESTA EXPIDET [Suspect]
     Active Substance: LORAZEPAM
     Indication: AGITATION
     Dosage: 0.5MG 1X/DAY
     Route: 048
  5. TEMESTA EXPIDET [Suspect]
     Active Substance: LORAZEPAM
     Dosage: 2.5 MG, 3X/DAY
     Route: 048
  6. MABTHERA [Suspect]
     Active Substance: RITUXIMAB
     Dosage: 1000 MG, CYCLIC
     Route: 040
     Dates: start: 20170614
  7. DAFALGAN [Concomitant]
     Active Substance: ACETAMINOPHEN
     Dosage: 1000MG X3/DAY, AS NEEDED, AT HOME
     Route: 048
  8. VI-DE 3 [Concomitant]
     Active Substance: CHOLECALCIFEROL
     Dosage: 800 IU, DAILY
     Route: 048
     Dates: start: 20170905
  9. IRFEN [Concomitant]
     Active Substance: IBUPROFEN
     Dosage: 400 MG TWICE DAILY ON DEMAND
     Dates: start: 20171011
  10. ORFIRIL LONG [Suspect]
     Active Substance: VALPROIC ACID
     Indication: IMPULSIVE BEHAVIOUR
     Dosage: 300 MG, 1X/DAY
     Route: 048
     Dates: start: 20170405, end: 20170704
  11. QUETIAPINE. [Suspect]
     Active Substance: QUETIAPINE
     Indication: CONDUCT DISORDER
     Dosage: 125 MG, 3X/DAY
     Route: 048
     Dates: start: 20170515, end: 20170828
  12. PURSANA [Concomitant]
     Active Substance: FIG FRUIT OIL\SORBITOL
     Dosage: 15 ML TWICE DAILY ON DEMAND
     Route: 048
  13. MABTHERA [Suspect]
     Active Substance: RITUXIMAB
     Indication: MULTIPLE SCLEROSIS
     Dosage: 1000 MG, CYCLIC
     Route: 040
     Dates: start: 20170531
  14. RIVOTRIL [Suspect]
     Active Substance: CLONAZEPAM
     Indication: AGITATION
     Dosage: 0.5MG 1-2X/DAY
     Route: 048
     Dates: start: 20170817, end: 20171001

REACTIONS (2)
  - Condition aggravated [Not Recovered/Not Resolved]
  - Abnormal behaviour [Not Recovered/Not Resolved]

NARRATIVE: CASE EVENT DATE: 2017
